FAERS Safety Report 23025870 (Version 1)
Quarter: 2023Q4

REPORT INFORMATION
  Report Type: Spontaneous
  Country: US (occurrence: US)
  Receive Date: 20231004
  Receipt Date: 20231004
  Transmission Date: 20240109
  Serious: Yes (Life-Threatening, Hospitalization, Other)
  Sender: FDA-Public Use
  Company Number: None

PATIENT
  Age: 14 Month
  Sex: Female

DRUGS (5)
  1. GABAPENTIN [Suspect]
     Active Substance: GABAPENTIN
     Indication: Dermatitis diaper
     Dosage: UNK (CREAM) (6 PERCENT)
     Route: 061
  2. BACLOFEN [Suspect]
     Active Substance: BACLOFEN
     Indication: Dermatitis diaper
     Dosage: UNK
     Route: 061
  3. KETAMINE [Suspect]
     Active Substance: KETAMINE
     Indication: Dermatitis diaper
     Dosage: UNK
     Route: 061
  4. TETRACAINE [Concomitant]
     Active Substance: TETRACAINE
     Indication: Dermatitis diaper
     Dosage: UNK
     Route: 061
  5. DICLOFENAC [Concomitant]
     Active Substance: DICLOFENAC
     Indication: Dermatitis diaper
     Dosage: UNK
     Route: 061

REACTIONS (8)
  - Mental status changes [Recovered/Resolved]
  - Toxicity to various agents [Recovered/Resolved]
  - Head injury [Recovered/Resolved]
  - Dizziness [Recovered/Resolved]
  - Somnolence [Recovered/Resolved]
  - Vomiting [Recovered/Resolved]
  - Nausea [Recovered/Resolved]
  - Product administered to patient of inappropriate age [Unknown]
